FAERS Safety Report 7093559-X (Version None)
Quarter: 2010Q4

REPORT INFORMATION
  Report Type: 
  Country: None (occurrence: None)
  Receive Date: 20101110
  Receipt Date: 20100609
  Transmission Date: 20110411
  Serious: Yes (Death, Hospitalization)
  Sender: FDA-Public Use
  Company Number: ES-ROCHE-681357

PATIENT
  Sex: Female
  Weight: 55.5 kg

DRUGS (5)
  1. CAPECITABINE [Suspect]
     Dosage: FREQUENCY-DAY 2- DAY 8: Q2W. TEMPORARILY INTERRUPTED.
     Route: 048
     Dates: start: 20100114, end: 20100101
  2. CAPECITABINE [Suspect]
     Route: 048
     Dates: start: 20100211, end: 20100218
  3. BEVACIZUMAB [Suspect]
     Dosage: FORM:INFUSION
     Route: 042
     Dates: start: 20100113, end: 20100224
  4. IRINOTECAN HCL [Suspect]
     Dosage: FORM:INFUSION, TEMPORARILY INTERRUPTED
     Route: 042
     Dates: start: 20100113, end: 20100113
  5. IRINOTECAN HCL [Suspect]
     Route: 042
     Dates: start: 20100210, end: 20100224

REACTIONS (6)
  - DIARRHOEA [None]
  - NAUSEA [None]
  - NEUTROPENIA [None]
  - PANCYTOPENIA [None]
  - RENAL FAILURE [None]
  - VOMITING [None]
